FAERS Safety Report 4732783-5 (Version None)
Quarter: 2005Q3

REPORT INFORMATION
  Report Type: 
  Country: None (occurrence: None)
  Receive Date: 20050801
  Receipt Date: 20050721
  Transmission Date: 20060218
  Serious: Yes (Death, Other)
  Sender: FDA-Public Use
  Company Number: 2005-07-1498

PATIENT
  Age: 69 Year
  Sex: Female

DRUGS (2)
  1. BETAMETHASONE [Suspect]
     Dosage: 8.5 MG/D
  2. BETAMETHASONE SODIUM PHOSPHATE [Suspect]
     Dosage: INTRAVENOUS
     Route: 042

REACTIONS (6)
  - BACTERIAL INFECTION [None]
  - ENTEROCOCCAL SEPSIS [None]
  - MONONEUROPATHY MULTIPLEX [None]
  - PNEUMOCYSTIS JIROVECI PNEUMONIA [None]
  - RESPIRATORY FAILURE [None]
  - THERAPY NON-RESPONDER [None]
